FAERS Safety Report 10501867 (Version 1)
Quarter: 2014Q4

REPORT INFORMATION
  Report Type: Spontaneous
  Country: US (occurrence: US)
  Receive Date: 20141007
  Receipt Date: 20141007
  Transmission Date: 20150528
  Serious: No
  Sender: FDA-Public Use
  Company Number: US-PFIZER INC-2014271161

PATIENT
  Age: 50 Year
  Sex: Female

DRUGS (1)
  1. ADVIL [Suspect]
     Active Substance: IBUPROFEN
     Indication: HEADACHE
     Dosage: ONE TABLET, ONCE
     Dates: start: 201408, end: 201408

REACTIONS (4)
  - Foreign body [Recovered/Resolved]
  - Burning sensation [Recovered/Resolved]
  - Pain [Recovered/Resolved]
  - Product coating issue [Recovered/Resolved]

NARRATIVE: CASE EVENT DATE: 201408
